FAERS Safety Report 15043148 (Version 1)
Quarter: 2018Q2

REPORT INFORMATION
  Report Type: Spontaneous
  Country: US (occurrence: US)
  Receive Date: 20180621
  Receipt Date: 20180621
  Transmission Date: 20180711
  Serious: No
  Sender: FDA-Public Use
  Company Number: US-GLAXOSMITHKLINE-US2018107662

PATIENT
  Sex: Female

DRUGS (13)
  1. CYMBALTA [Concomitant]
     Active Substance: DULOXETINE HYDROCHLORIDE
  2. IMURAN [Concomitant]
     Active Substance: AZATHIOPRINE
  3. NEURONTIN [Concomitant]
     Active Substance: GABAPENTIN
  4. ARMOUR THYROID [Concomitant]
     Active Substance: THYROID, PORCINE
  5. LASIX [Concomitant]
     Active Substance: FUROSEMIDE
  6. PROTONIX [Concomitant]
     Active Substance: PANTOPRAZOLE SODIUM
  7. TUMERIC [Concomitant]
     Active Substance: HERBALS\TURMERIC
  8. PERCOCET [Concomitant]
     Active Substance: ACETAMINOPHEN\OXYCODONE HYDROCHLORIDE
  9. BENLYSTA [Suspect]
     Active Substance: BELIMUMAB
     Indication: SYSTEMIC LUPUS ERYTHEMATOSUS
     Dosage: 200 MG, WE
     Route: 058
  10. PENICILLIN [Concomitant]
     Active Substance: PENICILLIN
  11. PREDNISONE. [Concomitant]
     Active Substance: PREDNISONE
  12. FISH OIL [Concomitant]
     Active Substance: FISH OIL
  13. METOPROLOL. [Concomitant]
     Active Substance: METOPROLOL

REACTIONS (5)
  - Exposure via skin contact [Unknown]
  - Underdose [Unknown]
  - Skin abrasion [Unknown]
  - Wrong technique in device usage process [Unknown]
  - Overdose [Unknown]
